FAERS Safety Report 9924637 (Version 2)
Quarter: 2014Q2

REPORT INFORMATION
  Report Type: Spontaneous
  Country: US (occurrence: US)
  Receive Date: 20140226
  Receipt Date: 20140425
  Transmission Date: 20141212
  Serious: Yes (Other)
  Sender: FDA-Public Use
  Company Number: US-PFIZER INC-2014053017

PATIENT
  Age: 85 Year
  Sex: Female

DRUGS (10)
  1. SUTENT [Suspect]
     Indication: RENAL CELL CARCINOMA
     Dosage: 12.5 MG, DAILY
     Route: 048
     Dates: start: 20130828
  2. SUTENT [Suspect]
     Dosage: 50 MG, DAILY 4 WEEKS ON, 2 WEEKS OFF
     Route: 048
     Dates: start: 20140104, end: 20140203
  3. SUTENT [Suspect]
     Dosage: 25 MG, DAILY
     Route: 048
     Dates: start: 20140217
  4. COMBIVENT [Concomitant]
     Dosage: UNK
  5. VITAMIN D [Concomitant]
     Dosage: UNK
  6. FLOVENT [Concomitant]
     Dosage: UNK
  7. PRILOSEC [Concomitant]
     Dosage: UNK
  8. SENNA [Concomitant]
     Dosage: UNK
  9. ZOLOFT [Concomitant]
     Dosage: UNK
  10. AMLODIPINE [Concomitant]
     Dosage: UNK

REACTIONS (1)
  - White blood cell count decreased [Unknown]
